FAERS Safety Report 4709698-1 (Version None)
Quarter: 2005Q3

REPORT INFORMATION
  Report Type: 
  Country: None (occurrence: None)
  Receive Date: 20050707
  Receipt Date: 20050621
  Transmission Date: 20060218
  Serious: Yes (Hospitalization)
  Sender: FDA-Public Use
  Company Number: USA0506100967

PATIENT
  Age: 69 Year
  Sex: Female

DRUGS (3)
  1. FORTEO [Suspect]
     Indication: OSTEOPOROSIS
     Dates: start: 20031201
  2. LOVENOX [Concomitant]
  3. ACTONEL [Concomitant]

REACTIONS (6)
  - CHEST WALL PAIN [None]
  - DEEP VEIN THROMBOSIS [None]
  - GASTRIC DISORDER [None]
  - PAIN IN EXTREMITY [None]
  - SHOULDER PAIN [None]
  - SPINAL FRACTURE [None]
